FAERS Safety Report 25739154 (Version 1)
Quarter: 2025Q3

REPORT INFORMATION
  Report Type: Spontaneous
  Country: GB (occurrence: GB)
  Receive Date: 20250829
  Receipt Date: 20250829
  Transmission Date: 20251021
  Serious: Yes (Life-Threatening, Other)
  Sender: OCTAPHARMA
  Company Number: None

PATIENT
  Sex: Female

DRUGS (2)
  1. HUMAN IMMUNOGLOBULIN G [Suspect]
     Active Substance: HUMAN IMMUNOGLOBULIN G
     Indication: Chronic inflammatory demyelinating polyradiculoneuropathy
     Dates: start: 20250723, end: 20250821
  2. IMMUNOGLOBULIN NORMAL [Concomitant]
     Indication: Chronic inflammatory demyelinating polyradiculoneuropathy
     Route: 050
     Dates: start: 20121231, end: 20250702

REACTIONS (1)
  - Inappropriate antidiuretic hormone secretion [Recovering/Resolving]

NARRATIVE: CASE EVENT DATE: 20250816
